FAERS Safety Report 6430739-8 (Version None)
Quarter: 2009Q4

REPORT INFORMATION
  Report Type: 
  Country: None (occurrence: None)
  Receive Date: 20091105
  Receipt Date: 20091105
  Transmission Date: 20100525
  Serious: Yes (Hospitalization)
  Sender: FDA-Public Use
  Company Number: None

PATIENT
  Sex: Female
  Weight: 54 kg

DRUGS (7)
  1. CYCLOPHOSPHAMIDE [Suspect]
     Dosage: 1600 MG
  2. CYTARABINE [Suspect]
     Dosage: 960 MG
  3. DEXAMETHASONE [Suspect]
     Dosage: 224 MG
  4. DOXORUBICIN HYDROCHLORIDE [Suspect]
     Dosage: 120 MG
  5. METHOTREXATE [Suspect]
     Dosage: 45 MG
  6. THIOGUANINE [Suspect]
     Dosage: 1400 MG
  7. VINCRISTINE SULFATE [Suspect]
     Dosage: 8 MG

REACTIONS (2)
  - PNEUMONIA [None]
  - PYREXIA [None]
